FAERS Safety Report 9943832 (Version 1)
Quarter: 2014Q1

REPORT INFORMATION
  Report Type: Spontaneous
  Country: US (occurrence: US)
  Receive Date: 20140303
  Receipt Date: 20140303
  Transmission Date: 20141002
  Serious: Yes (Hospitalization)
  Sender: FDA-Public Use
  Company Number: US-B.I. PHARMACEUTICALS,INC./RIDGEFIELD-2014-BI-08795BP

PATIENT
  Age: 65 Year
  Sex: Female

DRUGS (20)
  1. COMBIVENT [Suspect]
     Indication: CHRONIC OBSTRUCTIVE PULMONARY DISEASE
     Dosage: STRENGTH: 20 MCG / 100 MCG; DAILY DOSE: 80 MCG/ 400 MCG
     Route: 055
     Dates: start: 2013
  2. ALBUTEROL [Concomitant]
     Route: 055
  3. HYDROCHLOROTHIAZIDE [Concomitant]
     Route: 048
  4. LORAZEPAM [Concomitant]
     Route: 048
  5. FORADIL [Concomitant]
     Route: 055
  6. FOLIC ACID [Concomitant]
     Route: 048
  7. SOMA [Concomitant]
     Route: 048
  8. ALBUTEROL NEBULIZER [Concomitant]
     Route: 055
  9. HYDROCODONE [Concomitant]
     Route: 048
  10. LISINIPRIL [Concomitant]
     Route: 048
  11. TEMAZEPAM [Concomitant]
     Route: 048
  12. FLOVENT [Concomitant]
     Route: 055
  13. AROMASIN [Concomitant]
     Route: 048
  14. LOPRESSOR [Concomitant]
     Route: 048
  15. VITAMIN D [Concomitant]
     Route: 048
  16. PRAVASTATIN [Concomitant]
     Route: 048
  17. ASPIRIN [Concomitant]
     Route: 048
  18. BENEDRYL [Concomitant]
     Indication: HYPERSENSITIVITY
     Route: 048
  19. VITAMIN B12 [Concomitant]
     Route: 048
  20. VITAMIN B6 [Concomitant]
     Route: 048

REACTIONS (4)
  - Convulsion [Recovered/Resolved]
  - Pneumonia [Not Recovered/Not Resolved]
  - Confusional state [Recovered/Resolved]
  - Drug ineffective [Not Recovered/Not Resolved]
